FAERS Safety Report 10228922 (Version 1)
Quarter: 2014Q2

REPORT INFORMATION
  Report Type: Spontaneous
  Country: US (occurrence: US)
  Receive Date: 20140610
  Receipt Date: 20140610
  Transmission Date: 20141212
  Serious: Yes (Hospitalization)
  Sender: FDA-Public Use
  Company Number: US-GLAXOSMITHKLINE-A1071003A

PATIENT
  Age: 62 Year
  Sex: Female

DRUGS (1)
  1. VOTRIENT [Suspect]
     Indication: OSTEOSARCOMA
     Dosage: 600MG PER DAY
     Route: 065
     Dates: start: 20140412

REACTIONS (2)
  - Blood pressure increased [Unknown]
  - Sarcoma [Unknown]
